FAERS Safety Report 24542318 (Version 2)
Quarter: 2024Q4

REPORT INFORMATION
  Report Type: Spontaneous
  Country: JP (occurrence: JP)
  Receive Date: 20241023
  Receipt Date: 20241219
  Transmission Date: 20250115
  Serious: Yes (Hospitalization)
  Sender: SANOFI AVENTIS
  Company Number: JP-SAKK-02271711

PATIENT
  Age: 20 Year
  Sex: Female

DRUGS (4)
  1. DUPIXENT [Suspect]
     Active Substance: DUPILUMAB
     Indication: Chronic rhinosinusitis with nasal polyps
     Dosage: UNK UNK, QM
     Route: 058
  2. DUPIXENT [Suspect]
     Active Substance: DUPILUMAB
     Dosage: UNK UNK, QM
     Route: 058
  3. MOMETASONE FUROATE [Concomitant]
     Active Substance: MOMETASONE FUROATE
     Indication: Chronic rhinosinusitis with nasal polyps
     Route: 045
  4. DESLORATADINE [Concomitant]
     Active Substance: DESLORATADINE
     Indication: Chronic rhinosinusitis with nasal polyps
     Route: 065

REACTIONS (3)
  - Eczema [Unknown]
  - Injection site induration [Unknown]
  - Product storage error [Unknown]
